FAERS Safety Report 5764668-X (Version None)
Quarter: 2008Q2

REPORT INFORMATION
  Report Type: 
  Country: None (occurrence: None)
  Receive Date: 20080611
  Receipt Date: 20080604
  Transmission Date: 20081010
  Serious: Yes (Other)
  Sender: FDA-Public Use
  Company Number: PHEH2008US05087

PATIENT
  Sex: Male

DRUGS (6)
  1. TEKTURNA [Suspect]
     Dosage: 150 MG, UNK
     Dates: start: 20080101, end: 20080201
  2. TEKTURNA [Suspect]
     Dosage: 300 MG, UNK
     Dates: start: 20080201
  3. COZAAR [Concomitant]
     Dosage: UNK, UNK
  4. FELODIPINE [Concomitant]
     Dosage: UNK, UNK
  5. CLONIDINE [Concomitant]
     Dosage: UNK, UNK
  6. METOPROLOL TARTRATE [Concomitant]
     Dosage: UNK, UNK

REACTIONS (2)
  - CROHN'S DISEASE [None]
  - DIARRHOEA [None]
